FAERS Safety Report 8607072-9 (Version None)
Quarter: 2012Q3

REPORT INFORMATION
  Report Type: 
  Country: None (occurrence: None)
  Receive Date: 20120821
  Receipt Date: 20120809
  Transmission Date: 20120928
  Serious: Yes (Hospitalization)
  Sender: FDA-Public Use
  Company Number: GB-BRISTOL-MYERS SQUIBB COMPANY-16653198

PATIENT
  Age: 17 Year
  Sex: Female

DRUGS (4)
  1. ABILIFY [Suspect]
     Indication: ATTENTION DEFICIT/HYPERACTIVITY DISORDER
     Dosage: THERAPY STARTED APPROXIMATELY 1 YR BACK.
     Route: 048
     Dates: start: 20110501, end: 20120401
  2. ATOMOXETINE HCL [Concomitant]
     Dosage: FOR MANY YEARS
  3. AZATHIOPRINE [Suspect]
     Indication: INFLAMMATORY BOWEL DISEASE
     Dosage: FOR MANY YEARS
     Dates: end: 20120401
  4. ABILIFY [Suspect]
     Indication: ASPERGER'S DISORDER
     Dosage: THERAPY STARTED APPROXIMATELY 1 YR BACK.
     Route: 048
     Dates: start: 20110501, end: 20120401

REACTIONS (2)
  - INFECTION [None]
  - WHITE BLOOD CELL COUNT DECREASED [None]
